FAERS Safety Report 6931576-8 (Version None)
Quarter: 2010Q3

REPORT INFORMATION
  Report Type: 
  Country: None (occurrence: None)
  Receive Date: 20100819
  Receipt Date: 20100805
  Transmission Date: 20110219
  Serious: Yes (Other)
  Sender: FDA-Public Use
  Company Number: US-ELI_LILLY_AND_COMPANY-US201008002575

PATIENT
  Sex: Female

DRUGS (5)
  1. FORTEO [Suspect]
     Dosage: 20 UG, DAILY (1/D)
  2. FORTEO [Suspect]
     Dosage: 20 UG, DAILY (1/D)
  3. AMLODIPINE [Concomitant]
  4. ARICEPT [Concomitant]
  5. VITAMIN TAB [Concomitant]

REACTIONS (7)
  - BALANCE DISORDER [None]
  - FALL [None]
  - FEMUR FRACTURE [None]
  - GAIT DISTURBANCE [None]
  - HAEMORRHAGE [None]
  - PATELLA FRACTURE [None]
  - WRIST FRACTURE [None]
